FAERS Safety Report 7000002-5 (Version None)
Quarter: 2010Q3

REPORT INFORMATION
  Report Type: 
  Country: None (occurrence: None)
  Receive Date: 20100920
  Receipt Date: 20070703
  Transmission Date: 20110219
  Serious: Yes (Hospitalization, Other)
  Sender: FDA-Public Use
  Company Number: US-ASTRAZENECA-2006UW24015

PATIENT
  Age: 14674 Day
  Sex: Male
  Weight: 75.5 kg

DRUGS (14)
  1. SEROQUEL [Suspect]
     Indication: SCHIZOPHRENIA
     Dosage: 100 - 300 MG
     Route: 048
     Dates: start: 20000721
  2. SEROQUEL [Suspect]
     Indication: DEPRESSION
     Dosage: 100 - 300 MG
     Route: 048
     Dates: start: 20000721
  3. SEROQUEL [Suspect]
     Route: 048
     Dates: end: 20050101
  4. SEROQUEL [Suspect]
     Route: 048
     Dates: end: 20050101
  5. ZYPREXA [Suspect]
     Dates: start: 20040101
  6. NAVANE [Concomitant]
     Dates: start: 20000101
  7. RISPERDAL [Concomitant]
  8. LIBRIUM [Concomitant]
     Route: 048
     Dates: start: 20000926
  9. ATIVAN [Concomitant]
     Route: 048
     Dates: start: 20001122
  10. HYDROCODONE BITARTRATE AND ACETAMINOPHEN [Concomitant]
     Dosage: 5 / 500
     Route: 048
     Dates: start: 20000530
  11. PENTAZOCINE-NALOXONE HCL [Concomitant]
     Dosage: 50 - 0.5 MG
     Dates: start: 20010517
  12. PRILOSEC [Concomitant]
     Dates: start: 20010531
  13. DOXEPIN HCL [Concomitant]
     Indication: DEPRESSION
     Dates: start: 20010604
  14. XANAX [Concomitant]
     Indication: ANXIETY
     Dates: start: 20000505

REACTIONS (3)
  - HYPERGLYCAEMIA [None]
  - PANCREATITIS [None]
  - PANCREATITIS CHRONIC [None]
